FAERS Safety Report 14378726 (Version 1)
Quarter: 2018Q1

REPORT INFORMATION
  Report Type: Spontaneous
  Country: US (occurrence: US)
  Receive Date: 20180112
  Receipt Date: 20180112
  Transmission Date: 20180509
  Serious: Yes (Other)
  Sender: FDA-Public Use
  Company Number: US-AUROBINDO-AUR-APL-2018-001686

PATIENT
  Age: 59 Year
  Sex: Male

DRUGS (1)
  1. BUPIVACAINE HYDROCHLORIDE. [Suspect]
     Active Substance: BUPIVACAINE HYDROCHLORIDE
     Indication: ANAESTHESIA
     Dosage: INFUSED VIA THE ADDUCTOR CANAL CONTINUOUS PERIPHERAL NERVE BLOCK
     Route: 065

REACTIONS (1)
  - Mononeuropathy [Recovered/Resolved]
